FAERS Safety Report 6322500-X (Version None)
Quarter: 2009Q3

REPORT INFORMATION
  Report Type: 
  Country: None (occurrence: None)
  Receive Date: 20090817
  Receipt Date: 20090616
  Transmission Date: 20100115
  Serious: Yes (Other)
  Sender: FDA-Public Use
  Company Number: ADR-212-027

PATIENT
  Age: 11 Year
  Sex: Male

DRUGS (4)
  1. SERTRALINE HYDROCHLORIDE [Suspect]
     Indication: ANXIETY
     Dosage: 1/2 TABLET 1/DAY ORAL
     Route: 048
  2. SERTRALINE HYDROCHLORIDE [Suspect]
     Indication: DEPRESSION
     Dosage: 1/2 TABLET 1/DAY ORAL
     Route: 048
  3. RISPERIDONE [Concomitant]
  4. ADDERALL 10 [Concomitant]

REACTIONS (2)
  - AGGRESSION [None]
  - DRUG INEFFECTIVE [None]
